FAERS Safety Report 9555478 (Version 1)
Quarter: 2013Q3

REPORT INFORMATION
  Report Type: Spontaneous
  Country: US (occurrence: None)
  Receive Date: 20130925
  Receipt Date: 20130925
  Transmission Date: 20140515
  Serious: Yes (Life-Threatening)
  Sender: FDA-Public Use
  Company Number: None

PATIENT
  Age: 60 Year
  Sex: Female

DRUGS (3)
  1. LIDOCAINE [Suspect]
     Indication: NEUROMA
     Dates: start: 20130910
  2. KENALOG [Concomitant]
  3. SENSORCAINE [Concomitant]

REACTIONS (4)
  - Rash [None]
  - Urticaria [None]
  - Lip swelling [None]
  - Swollen tongue [None]
